FAERS Safety Report 14868163 (Version 2)
Quarter: 2018Q2

REPORT INFORMATION
  Report Type: Spontaneous
  Country: US (occurrence: US)
  Receive Date: 20180509
  Receipt Date: 20180620
  Transmission Date: 20180711
  Serious: Yes (Death)
  Sender: FDA-Public Use
  Company Number: US-BIOVITRUM-2018US0496

PATIENT
  Sex: Male

DRUGS (1)
  1. ANAKINRA [Suspect]
     Active Substance: ANAKINRA

REACTIONS (6)
  - Serum ferritin increased [Fatal]
  - Aldolase increased [Fatal]
  - Blood fibrinogen decreased [Fatal]
  - Blood lactate dehydrogenase increased [Fatal]
  - Anaemia [Fatal]
  - Arthritis [Fatal]
